FAERS Safety Report 19386084 (Version 2)
Quarter: 2021Q2

REPORT INFORMATION
  Report Type: Spontaneous
  Country: US (occurrence: US)
  Receive Date: 20210607
  Receipt Date: 20210611
  Transmission Date: 20210717
  Serious: No
  Sender: FDA-Public Use
  Company Number: NVSC2021US123804

PATIENT
  Sex: Female

DRUGS (1)
  1. LATANOPROST. [Suspect]
     Active Substance: LATANOPROST
     Indication: GLAUCOMA
     Dosage: UNK UNK, QD (EVERY NIGHT, 3 YEARS)
     Route: 047
     Dates: start: 20210529

REACTIONS (2)
  - Product container issue [Unknown]
  - Eye irritation [Unknown]
